FAERS Safety Report 6139273-6 (Version None)
Quarter: 2009Q2

REPORT INFORMATION
  Report Type: 
  Country: None (occurrence: None)
  Receive Date: 20090401
  Receipt Date: 20090326
  Transmission Date: 20091009
  Serious: Yes (Life-Threatening, Hospitalization)
  Sender: FDA-Public Use
  Company Number: US-BRISTOL-MYERS SQUIBB COMPANY-14563357

PATIENT
  Age: 60 Year
  Sex: Male
  Weight: 99 kg

DRUGS (10)
  1. DASATINIB [Suspect]
     Indication: CHORDOMA
     Dosage: 50MG(BID) ORAL FROM 24FEB09 20MG(BID) ORAL FROM 24FEB09
     Route: 048
     Dates: start: 20090224
  2. AVAPRO [Concomitant]
     Dates: start: 20000901
  3. CRESTOR [Concomitant]
     Dosage: QHS
     Route: 048
     Dates: start: 20060701
  4. PREVACID [Concomitant]
     Route: 048
     Dates: start: 20080101
  5. DOCUSATE [Concomitant]
     Route: 048
     Dates: start: 20081101
  6. VICODIN ES [Concomitant]
     Dosage: 1 DOSAGE FORM = 7.5/750 (UNITS NOT SPECIFIED)
     Route: 048
     Dates: start: 20090222
  7. DIAZEPAM [Concomitant]
     Route: 048
     Dates: start: 20000901
  8. COMPAZINE [Concomitant]
  9. CIPROFLOXACIN HCL [Concomitant]
     Route: 048
     Dates: start: 20090303
  10. CLARITIN [Concomitant]
     Dates: start: 20090316

REACTIONS (2)
  - HEADACHE [None]
  - HYPERTENSION [None]
